FAERS Safety Report 5298338-1 (Version None)
Quarter: 2007Q2

REPORT INFORMATION
  Report Type: 
  Country: None (occurrence: None)
  Receive Date: 20070409
  Receipt Date: 20070330
  Transmission Date: 20071010
  Serious: Yes (Death)
  Sender: FDA-Public Use
  Company Number: 2007-00877

PATIENT
  Age: 63 Year
  Sex: Female

DRUGS (6)
  1. VELCADE [Suspect]
     Indication: MULTIPLE MYELOMA
     Dosage: 1.30 MG/M2, UNK; INTRAVENOUS
     Route: 042
     Dates: start: 20061028, end: 20061103
  2. NEURONTIN [Concomitant]
  3. AMITRIPTYLINE HCL [Concomitant]
  4. APPROVEL (IRBESARTAN) [Concomitant]
  5. GLUCOBAY [Concomitant]
  6. NATEGLINIDE [Concomitant]

REACTIONS (1)
  - DEATH [None]
